FAERS Safety Report 7369086-9 (Version None)
Quarter: 2011Q1

REPORT INFORMATION
  Report Type: 
  Country: None (occurrence: None)
  Receive Date: 20110323
  Receipt Date: 20110321
  Transmission Date: 20110831
  Serious: Yes (Hospitalization, Other)
  Sender: FDA-Public Use
  Company Number: US-ROCHE-485903

PATIENT
  Sex: Female
  Weight: 68 kg

DRUGS (11)
  1. LOESTRIN FE 1.5/30 [Concomitant]
     Dates: start: 20010320
  2. IMITREX [Concomitant]
     Indication: MIGRAINE
     Route: 048
  3. BLISTEX [Concomitant]
     Route: 061
  4. ACCUTANE [Suspect]
     Route: 048
     Dates: start: 20010314, end: 20010917
  5. PRILOSEC [Concomitant]
     Route: 048
  6. ORTHO-NOVUM [Concomitant]
     Dosage: REPORTED AS ORTHO NOVUM 777
  7. SULFASALAZINE [Concomitant]
  8. WESTCORT OINTMENT [Concomitant]
     Indication: CHEILITIS
     Route: 061
  9. SPIRONOLACTONE [Concomitant]
     Dosage: INDICATION FOR USE REPORTED AS SKIN.
  10. LITHIUM CARBONATE [Concomitant]
  11. ACCUTANE [Suspect]
     Dosage: STRENGTH NOTED AS 20 MG.
     Route: 048
     Dates: start: 19970311, end: 19970711

REACTIONS (26)
  - INFLAMMATORY BOWEL DISEASE [None]
  - COLITIS ULCERATIVE [None]
  - ABDOMINAL PAIN [None]
  - RECTAL HAEMORRHAGE [None]
  - AUTOIMMUNE HEPATITIS [None]
  - COLITIS [None]
  - ANXIETY [None]
  - SUICIDAL IDEATION [None]
  - FLIGHT OF IDEAS [None]
  - LIP DRY [None]
  - SPONDYLOARTHROPATHY [None]
  - IRRITABLE BOWEL SYNDROME [None]
  - PROCTITIS [None]
  - DEHYDRATION [None]
  - ANAL FISSURE [None]
  - CHEILITIS [None]
  - CROHN'S DISEASE [None]
  - ANAEMIA [None]
  - HAEMATOCHEZIA [None]
  - BIPOLAR DISORDER [None]
  - PANCREATITIS [None]
  - DEPRESSION [None]
  - GASTROOESOPHAGEAL REFLUX DISEASE [None]
  - SPEECH DISORDER [None]
  - WEIGHT DECREASED [None]
  - ARTHRITIS [None]
